FAERS Safety Report 17996043 (Version 1)
Quarter: 2020Q3

REPORT INFORMATION
  Report Type: Spontaneous
  Country: US (occurrence: US)
  Receive Date: 20200708
  Receipt Date: 20200708
  Transmission Date: 20201103
  Serious: No
  Sender: FDA-Public Use
  Company Number: US-TARO-2019TAR00854

PATIENT
  Sex: Male

DRUGS (1)
  1. FLUOCINOLONE ACETONIDE TOPICAL BODY OIL 0.01% [Suspect]
     Active Substance: FLUOCINOLONE ACETONIDE
     Indication: ECZEMA
     Dosage: UNK
     Route: 061

REACTIONS (1)
  - Drug ineffective [Not Recovered/Not Resolved]
